FAERS Safety Report 9814413 (Version 1)
Quarter: 2014Q1

REPORT INFORMATION
  Report Type: Spontaneous
  Country: US (occurrence: US)
  Receive Date: 20140113
  Receipt Date: 20140113
  Transmission Date: 20141002
  Serious: No
  Sender: FDA-Public Use
  Company Number: US-ENDO PHARMACEUTICALS INC.-HCDA20130101

PATIENT
  Sex: Female

DRUGS (2)
  1. HYDROCODONE BITARTRATE / ACETAMINOPHEN [Suspect]
     Indication: NECK PAIN
     Dosage: 5/500 MG
     Route: 048
  2. HYDROCODONE BITARTRATE / ACETAMINOPHEN [Suspect]
     Indication: HEADACHE

REACTIONS (3)
  - Abdominal discomfort [Unknown]
  - Condition aggravated [Unknown]
  - Abdominal distension [Unknown]
